FAERS Safety Report 13575293 (Version 6)
Quarter: 2018Q4

REPORT INFORMATION
  Report Type: Report from Study
  Country: PA (occurrence: PA)
  Receive Date: 20170524
  Receipt Date: 20181003
  Transmission Date: 20190204
  Serious: Yes (Hospitalization)
  Sender: FDA-Public Use
  Company Number: PHHY2017PA075987

PATIENT
  Sex: Female

DRUGS (1)
  1. GILENYA [Suspect]
     Active Substance: FINGOLIMOD HYDROCHLORIDE
     Indication: MULTIPLE SCLEROSIS
     Dosage: 0.5 MG(ONCE A DAY AT 8:30 IN THE MORNING), QD
     Route: 065
     Dates: start: 20170511

REACTIONS (14)
  - White blood cell count increased [Unknown]
  - Nausea [Recovering/Resolving]
  - Discomfort [Unknown]
  - Memory impairment [Unknown]
  - Hypoaesthesia [Unknown]
  - Burning sensation [Unknown]
  - Syncope [Unknown]
  - Drug monitoring procedure not performed [Unknown]
  - Pain [Unknown]
  - Malaise [Recovering/Resolving]
  - Dizziness [Unknown]
  - Vision blurred [Recovering/Resolving]
  - Headache [Recovered/Resolved]
  - Thyroid disorder [Unknown]
